FAERS Safety Report 6143929-9 (Version None)
Quarter: 2009Q2

REPORT INFORMATION
  Report Type: 
  Country: None (occurrence: None)
  Receive Date: 20090406
  Receipt Date: 20090326
  Transmission Date: 20091009
  Serious: Yes (Other)
  Sender: FDA-Public Use
  Company Number: JP-PFIZER INC-2009190476

PATIENT

DRUGS (5)
  1. SUNITINIB MALATE [Suspect]
     Indication: RENAL CELL CARCINOMA
     Dosage: 37.5 MG, 1X/DAY
     Route: 048
     Dates: start: 20081223, end: 20090217
  2. CORTRIL [Concomitant]
     Dosage: UNK MG, 2X/DAY
     Route: 048
  3. JUVELA NICOTINATE [Concomitant]
     Dosage: UNK MG, 3X/DAY
     Route: 048
  4. SPIROPENT [Concomitant]
     Dosage: UNK
     Route: 048
  5. PURSENNID [Concomitant]
     Dosage: UNK
     Route: 048

REACTIONS (1)
  - CEREBRAL INFARCTION [None]
